FAERS Safety Report 5192563-6 (Version None)
Quarter: 2006Q4

REPORT INFORMATION
  Report Type: 
  Country: None (occurrence: None)
  Receive Date: 20061220
  Receipt Date: 20061213
  Transmission Date: 20070319
  Serious: Yes (Hospitalization)
  Sender: FDA-Public Use
  Company Number: 163-21880-06120135

PATIENT
  Age: 51 Year
  Sex: Female

DRUGS (4)
  1. REVLIMID [Suspect]
     Indication: MULTIPLE MYELOMA
     Dosage: 25 MG, QD X21 DAYS, ORAL
     Route: 048
     Dates: start: 20061010, end: 20061125
  2. TRIMETHOPRIM                        (TIMETHOPRIM) [Concomitant]
  3. SULFAMETHOXAZOLE [Concomitant]
  4. DEXAMETHASONE [Concomitant]

REACTIONS (7)
  - HYPOTENSION [None]
  - METABOLIC ACIDOSIS [None]
  - PNEUMONIA [None]
  - RENAL FAILURE [None]
  - RENAL TUBULAR NECROSIS [None]
  - RESPIRATORY FAILURE [None]
  - TRACHEOBRONCHITIS [None]
